FAERS Safety Report 13276835 (Version 6)
Quarter: 2022Q1

REPORT INFORMATION
  Report Type: Report from Study
  Country: IE (occurrence: IE)
  Receive Date: 20170228
  Receipt Date: 20220118
  Transmission Date: 20220423
  Serious: Yes (Hospitalization)
  Sender: FDA-Public Use
  Company Number: IE-ASTELLAS-2017US006811

PATIENT
  Age: 73 Year
  Sex: Male

DRUGS (7)
  1. ENZALUTAMIDE [Suspect]
     Active Substance: ENZALUTAMIDE
     Indication: Prostate cancer metastatic
     Route: 048
     Dates: start: 20160926, end: 20170219
  2. RADIUM RA-223 DICHLORIDE [Suspect]
     Active Substance: RADIUM RA-223 DICHLORIDE
     Indication: Prostate cancer metastatic
     Dosage: 4.5 MB/5.08 MB, CYCLIC
     Route: 042
     Dates: start: 20160926, end: 20170213
  3. RAMIPRIL [Concomitant]
     Active Substance: RAMIPRIL
     Indication: Product used for unknown indication
     Route: 065
  4. LUPRON DEPOT [Concomitant]
     Active Substance: LEUPROLIDE ACETATE
     Indication: Product used for unknown indication
     Route: 030
  5. CALCI-CHEW [Concomitant]
     Indication: Product used for unknown indication
     Dosage: UNK UNK, TWICE DAILY
     Route: 065
  6. PANTOPRAZOLE [Concomitant]
     Active Substance: PANTOPRAZOLE
     Indication: Product used for unknown indication
     Route: 065
  7. NEUROFOR [Concomitant]
     Indication: Product used for unknown indication
     Dosage: UNK UNK, AS NEEDED
     Route: 048

REACTIONS (4)
  - Lower respiratory tract infection [Recovered/Resolved]
  - Fatigue [Recovered/Resolved]
  - Blood iron decreased [Recovered/Resolved]
  - C-reactive protein increased [Recovered/Resolved]

NARRATIVE: CASE EVENT DATE: 20170220
